FAERS Safety Report 7169439-8 (Version None)
Quarter: 2010Q4

REPORT INFORMATION
  Report Type: 
  Country: None (occurrence: None)
  Receive Date: 20101217
  Receipt Date: 20101208
  Transmission Date: 20110411
  Serious: Yes (Other)
  Sender: FDA-Public Use
  Company Number: US-BIOGENIDEC-2009BI007650

PATIENT
  Age: 49 Year
  Sex: Female

DRUGS (6)
  1. TYSABRI [Suspect]
     Indication: MULTIPLE SCLEROSIS
     Route: 042
     Dates: start: 20080903, end: 20081216
  2. TYSABRI [Suspect]
     Route: 042
     Dates: start: 20091005
  3. SKELAXIN [Concomitant]
     Indication: SPINAL COLUMN STENOSIS
  4. IMITREX [Concomitant]
     Indication: MIGRAINE
  5. EXCEDRIN (MIGRAINE) [Concomitant]
     Indication: MIGRAINE
  6. RITALIN [Concomitant]
     Indication: LETHARGY

REACTIONS (16)
  - ABDOMINAL PAIN UPPER [None]
  - ANXIETY [None]
  - BREAST HYPERPLASIA [None]
  - DIARRHOEA [None]
  - DRUG INEFFECTIVE [None]
  - FIBROADENOMA OF BREAST [None]
  - HEADACHE [None]
  - IRRITABLE BOWEL SYNDROME [None]
  - LETHARGY [None]
  - MIGRAINE [None]
  - MUSCLE SPASMS [None]
  - PAIN [None]
  - POOR QUALITY SLEEP [None]
  - SEASONAL ALLERGY [None]
  - STRESS [None]
  - VOMITING [None]
